FAERS Safety Report 18647425 (Version 1)
Quarter: 2020Q4

REPORT INFORMATION
  Report Type: Spontaneous
  Country: US (occurrence: US)
  Receive Date: 20201218
  Receipt Date: 20201218
  Transmission Date: 20210114
  Serious: Yes (Hospitalization)
  Sender: FDA-Public Use
  Company Number: None

PATIENT
  Age: 30 Year
  Sex: Female
  Weight: 124.74 kg

DRUGS (7)
  1. EMGALITY [Suspect]
     Active Substance: GALCANEZUMAB-GNLM
     Indication: MIGRAINE
     Route: 058
     Dates: start: 20200820, end: 20201021
  2. AUGMENTIN [Concomitant]
     Active Substance: AMOXICILLIN\CLAVULANATE POTASSIUM
  3. ALPRAZOLAM. [Concomitant]
     Active Substance: ALPRAZOLAM
  4. TOPIRANATE [Concomitant]
  5. SERTRALINE [Concomitant]
     Active Substance: SERTRALINE HYDROCHLORIDE
  6. MVI [Concomitant]
     Active Substance: VITAMINS
  7. ALBUTEROL MDI [Concomitant]
     Active Substance: ALBUTEROL

REACTIONS (2)
  - Gastritis [None]
  - Colitis ulcerative [None]
